FAERS Safety Report 14486025 (Version 2)
Quarter: 2018Q2

REPORT INFORMATION
  Report Type: Spontaneous
  Country: SE (occurrence: SE)
  Receive Date: 20180205
  Receipt Date: 20180405
  Transmission Date: 20180711
  Serious: Yes (Other)
  Sender: FDA-Public Use
  Company Number: SE-009507513-1801SWE010713

PATIENT
  Age: 27 Year
  Sex: Female
  Weight: 68 kg

DRUGS (4)
  1. BETAMETHASONE. [Suspect]
     Active Substance: BETAMETHASONE
     Dosage: 12, 10, 8, 6, 5 AND THEN 5 TABL. FOR A MAXIMUM OF 6 DAYS
     Route: 048
     Dates: start: 20180114
  2. OMEPRAZOLE. [Concomitant]
     Active Substance: OMEPRAZOLE
     Dosage: UNK
  3. AERIUS [Concomitant]
     Active Substance: DESLORATADINE
     Dosage: UNK
  4. YASMINELLE 28 [Concomitant]
     Dosage: UNK

REACTIONS (3)
  - Visual impairment [Not Recovered/Not Resolved]
  - Palpitations [Not Recovered/Not Resolved]
  - Headache [Not Recovered/Not Resolved]

NARRATIVE: CASE EVENT DATE: 20180114
